FAERS Safety Report 11872221 (Version 1)
Quarter: 2015Q4

REPORT INFORMATION
  Report Type: Report from Study
  Country: KR (occurrence: KR)
  Receive Date: 20151228
  Receipt Date: 20151228
  Transmission Date: 20160305
  Serious: Yes (Hospitalization)
  Sender: FDA-Public Use
  Company Number: KR-PURDUE PHARMA-GBR-2015-0032941

PATIENT
  Age: 64 Year
  Sex: Female

DRUGS (12)
  1. OXYCODONE INJECTABLE [Suspect]
     Active Substance: OXYCODONE
     Indication: CANCER PAIN
     Dosage: 20 MG, DAILY
     Route: 042
     Dates: start: 20151125, end: 20151130
  2. MACPERAN [Concomitant]
     Indication: ANTIEMETIC SUPPORTIVE CARE
     Dosage: 20 MG, DAILY
     Route: 042
     Dates: start: 20151123, end: 20151130
  3. URSA [Concomitant]
     Indication: PROPHYLAXIS
     Dosage: 300 MG, DAILY
     Route: 048
     Dates: start: 20151012
  4. RED BLOOD CELLS [Concomitant]
     Active Substance: HUMAN RED BLOOD CELL
     Indication: HAEMOGLOBIN DECREASED
     Dosage: 2 OTHER, DAILY
     Dates: start: 20151128, end: 20151128
  5. LANSTON [Concomitant]
     Active Substance: LANSOPRAZOLE
     Indication: PROPHYLAXIS
     Dosage: 30 MG, 1 CAPSULE
     Route: 048
     Dates: start: 20150930
  6. PACANCER [Suspect]
     Active Substance: DOCETAXEL
     Indication: CHEMOTHERAPY
     Dosage: 94 MG, UNK
     Route: 065
     Dates: start: 20151123, end: 20151123
  7. FEROBA [Concomitant]
     Active Substance: FERROUS SULFATE\PROTEASE
     Indication: ANAEMIA PROPHYLAXIS
     Dosage: 2 TABLET, DAILY
     Route: 048
     Dates: start: 20151002
  8. PACETA [Concomitant]
     Indication: PYREXIA
     Dosage: 1 G, DAILY
     Route: 042
     Dates: start: 20151128, end: 20151128
  9. ADRIAMYCIN [Suspect]
     Active Substance: DOXORUBICIN HYDROCHLORIDE
     Indication: CHEMOTHERAPY
     Dosage: 62 MG, DAILY
     Route: 042
     Dates: start: 20151123, end: 20151123
  10. NORVASC [Concomitant]
     Active Substance: AMLODIPINE BESYLATE
     Indication: HYPERTENSION
     Dosage: 1 TABLET, DAILY
     Route: 048
     Dates: start: 20151009
  11. CEFTAZIDIME. [Concomitant]
     Active Substance: CEFTAZIDIME
     Indication: ANTI-INFECTIVE THERAPY
     Dosage: 6 G, DAILY
     Route: 042
     Dates: start: 20151128
  12. CHLORPHENIRAMINE MALEATE. [Concomitant]
     Active Substance: CHLORPHENIRAMINE MALEATE
     Indication: PROPHYLAXIS
     Dosage: 8 MG, DAILY
     Route: 042
     Dates: start: 20151123, end: 20151130

REACTIONS (1)
  - Neutropenia [Recovered/Resolved]

NARRATIVE: CASE EVENT DATE: 20151129
